FAERS Safety Report 5233723-5 (Version None)
Quarter: 2007Q1

REPORT INFORMATION
  Report Type: 
  Country: None (occurrence: None)
  Receive Date: 20070208
  Receipt Date: 20070208
  Transmission Date: 20070707
  Serious: Yes (Disabling, Other)
  Sender: FDA-Public Use
  Company Number: DE-GLAXOSMITHKLINE-D0050180A

PATIENT
  Age: 68 Year
  Sex: Male
  Weight: 98 kg

DRUGS (15)
  1. AVODART [Suspect]
     Indication: BENIGN PROSTATIC HYPERPLASIA
     Dosage: .5MG PER DAY
     Route: 065
     Dates: start: 20041011, end: 20050131
  2. ALPHA BLOCKER [Suspect]
     Route: 065
     Dates: start: 20030101
  3. OMNIC [Concomitant]
     Route: 065
  4. INSULIN [Concomitant]
     Indication: DIABETES MELLITUS
     Route: 065
  5. METFORMIN HCL [Concomitant]
     Indication: DIABETES MELLITUS
     Route: 065
  6. ISMN [Concomitant]
     Indication: DIABETES MELLITUS
     Route: 065
  7. BLOPRESS [Concomitant]
     Indication: HYPERTENSION
     Dosage: 32MG PER DAY
     Route: 065
     Dates: start: 20040603
  8. INEGY [Concomitant]
     Indication: LIPID METABOLISM DISORDER
     Dosage: 10MG TWICE PER DAY
     Route: 065
     Dates: start: 20040929
  9. ASPIRIN [Concomitant]
     Indication: PLATELET AGGREGATION
     Dosage: 100MG PER DAY
     Route: 065
     Dates: start: 20041001
  10. TORSEMIDE [Concomitant]
     Indication: HYPERTENSION
     Route: 065
     Dates: start: 20040205
  11. TORSEMIDE [Concomitant]
     Dosage: 5MG PER DAY
     Route: 048
  12. YOHIMBINE [Concomitant]
     Route: 048
  13. PILOCARPINE HCL [Concomitant]
     Route: 047
  14. LEVITRA [Concomitant]
     Route: 048
  15. REDUCTIL [Concomitant]
     Route: 065
     Dates: start: 20040223

REACTIONS (2)
  - DRUG INTERACTION [None]
  - ERECTILE DYSFUNCTION [None]
